FAERS Safety Report 10485353 (Version 2)
Quarter: 2014Q4

REPORT INFORMATION
  Report Type: Report from Study
  Country: US (occurrence: US)
  Receive Date: 20140930
  Receipt Date: 20141008
  Transmission Date: 20150528
  Serious: Yes (Hospitalization, Other)
  Sender: FDA-Public Use
  Company Number: US-GILEAD-2014-0116476

PATIENT
  Age: 79 Year
  Sex: Male
  Weight: 97.3 kg

DRUGS (9)
  1. FISH OIL [Concomitant]
     Active Substance: FISH OIL
     Route: 048
  2. NOVOLOG [Concomitant]
     Active Substance: INSULIN ASPART
     Route: 048
  3. AZOR [Concomitant]
     Active Substance: AMLODIPINE BESYLATE\OLMESARTAN MEDOXOMIL
     Route: 048
  4. SOFOSBUVIR [Suspect]
     Active Substance: SOFOSBUVIR
     Indication: HEPATITIS C
     Dosage: 400 MG, QD
     Route: 048
     Dates: start: 20140429
  5. SPIRIVA [Concomitant]
     Active Substance: TIOTROPIUM BROMIDE MONOHYDRATE
     Dosage: UNK
     Route: 048
  6. ARGININE [Concomitant]
     Active Substance: ARGININE
     Route: 048
  7. ASPIRIN                            /00002701/ [Concomitant]
     Active Substance: ASPIRIN
     Route: 048
  8. RIBAVIRIN. [Suspect]
     Active Substance: RIBAVIRIN
     Indication: HEPATITIS C
     Dosage: 1200 MG, QD
     Route: 048
     Dates: start: 20140429
  9. ZINC [Concomitant]
     Active Substance: ZINC\ZINC CHLORIDE
     Route: 048

REACTIONS (1)
  - Stent placement [Unknown]

NARRATIVE: CASE EVENT DATE: 201405
